FAERS Safety Report 10413691 (Version 3)
Quarter: 2015Q1

REPORT INFORMATION
  Report Type: Report from Study
  Country: NZ (occurrence: NZ)
  Receive Date: 20140827
  Receipt Date: 20150205
  Transmission Date: 20150720
  Serious: Yes (Hospitalization, Other)
  Sender: FDA-Public Use
  Company Number: PHHY2014NZ101860

PATIENT
  Age: 45 Year
  Sex: Female

DRUGS (3)
  1. CLOZARIL [Suspect]
     Active Substance: CLOZAPINE
     Dosage: 12.5 MG, QD
     Route: 065
     Dates: start: 20140415
  2. CLOZARIL [Suspect]
     Active Substance: CLOZAPINE
     Dosage: UNK
     Route: 065
  3. CLOZARIL [Suspect]
     Active Substance: CLOZAPINE
     Indication: PRODUCT USED FOR UNKNOWN INDICATION
     Dosage: UNK
     Route: 065
     Dates: start: 20131211

REACTIONS (13)
  - Anxiety [Recovered/Resolved]
  - Bradyphrenia [Unknown]
  - Restlessness [Recovered/Resolved]
  - Suspiciousness [Recovered/Resolved]
  - Thought blocking [Recovered/Resolved]
  - Decreased appetite [Recovered/Resolved]
  - Mental disorder [Unknown]
  - Psychotic disorder [Recovered/Resolved]
  - Paranoia [Recovered/Resolved]
  - Fear [Recovering/Resolving]
  - Disinhibition [Unknown]
  - Sleep disorder [Recovered/Resolved]
  - Thinking abnormal [Recovered/Resolved]

NARRATIVE: CASE EVENT DATE: 20140422
